FAERS Safety Report 8360292-3 (Version None)
Quarter: 2012Q2

REPORT INFORMATION
  Report Type: 
  Country: None (occurrence: None)
  Receive Date: 20120515
  Receipt Date: 20120507
  Transmission Date: 20120825
  Serious: Yes (Other)
  Sender: FDA-Public Use
  Company Number: US-JNJFOC-20120408608

PATIENT
  Sex: Male
  Weight: 89.81 kg

DRUGS (12)
  1. SYMBICORT [Concomitant]
     Dates: start: 20080101
  2. SINGULAIR [Concomitant]
     Dates: start: 20080101
  3. ZOCOR [Concomitant]
     Indication: BLOOD CHOLESTEROL
     Dates: start: 20080101
  4. FINASTERIDE [Concomitant]
     Dates: start: 20080101
  5. LISINOPRIL [Concomitant]
     Dates: start: 20060101
  6. XARELTO [Suspect]
     Indication: DEEP VEIN THROMBOSIS
     Route: 048
     Dates: start: 20120217
  7. TERAZOSIN HCL [Concomitant]
     Dates: start: 20060101
  8. PRILOSEC [Concomitant]
     Dates: start: 20080101
  9. FUROSEMIDE [Concomitant]
  10. NIFEDIPINE [Concomitant]
     Dates: start: 20060101
  11. ASPIRIN [Suspect]
     Indication: CORONARY ARTERY DISEASE
  12. PLAVIX [Suspect]
     Indication: CORONARY ARTERY DISEASE
     Dates: start: 20110101

REACTIONS (1)
  - EYE HAEMORRHAGE [None]
